FAERS Safety Report 14172849 (Version 1)
Quarter: 2017Q4

REPORT INFORMATION
  Report Type: Spontaneous
  Country: US (occurrence: US)
  Receive Date: 20171109
  Receipt Date: 20171109
  Transmission Date: 20180321
  Serious: No
  Sender: FDA-Public Use
  Company Number: US-ACADIA PHARMACEUTICALS INC.-ACA-2017-005286

PATIENT
  Age: 71 Year
  Sex: Male

DRUGS (1)
  1. PIMAVANSERIN [Suspect]
     Active Substance: PIMAVANSERIN
     Indication: DEMENTIA WITH LEWY BODIES
     Dosage: UNK

REACTIONS (2)
  - Aggression [Unknown]
  - Off label use [Unknown]
